FAERS Safety Report 8859151 (Version 2)
Quarter: 2013Q1

REPORT INFORMATION
  Report Type: Spontaneous
  Country: PL (occurrence: PL)
  Receive Date: 20121024
  Receipt Date: 20130313
  Transmission Date: 20140127
  Serious: Yes (Hospitalization)
  Sender: FDA-Public Use
  Company Number: PL-SANOFI-AVENTIS-2012SA076144

PATIENT
  Age: 74 Year
  Sex: Female
  Weight: 54 kg

DRUGS (9)
  1. ARAVA [Suspect]
     Indication: RHEUMATOID ARTHRITIS
     Route: 048
     Dates: start: 20110620, end: 201201
  2. ARAVA [Suspect]
     Indication: RHEUMATOID ARTHRITIS
     Route: 048
     Dates: start: 201201, end: 20120514
  3. ENCORTON [Concomitant]
     Indication: RHEUMATOID ARTHRITIS
     Dates: start: 201106
  4. ENCORTON [Concomitant]
     Indication: RHEUMATOID ARTHRITIS
  5. ENCORTON [Concomitant]
     Indication: RHEUMATOID ARTHRITIS
  6. CICLOSPORIN [Concomitant]
     Indication: RHEUMATOID ARTHRITIS
     Dates: start: 20111214, end: 201201
  7. NSAID^S [Concomitant]
     Indication: RHEUMATOID ARTHRITIS
     Dosage: FREQUENCY: PERIODICALLY
  8. PLATELET [Concomitant]
     Dosage: CONCENTRATE DOSE:4 UNIT(S)
  9. IPP [Concomitant]
     Dosage: TAKEN ON AN EMPTY STOMACH

REACTIONS (6)
  - Haemorrhagic diathesis [Recovered/Resolved]
  - Gingival bleeding [Recovered/Resolved]
  - Lip haemorrhage [Recovered/Resolved]
  - Dehydration [Unknown]
  - Spinal osteoarthritis [Unknown]
  - Viral infection [Unknown]
